FAERS Safety Report 18386597 (Version 1)
Quarter: 2020Q4

REPORT INFORMATION
  Report Type: Spontaneous
  Country: US (occurrence: US)
  Receive Date: 20201014
  Receipt Date: 20201014
  Transmission Date: 20210114
  Serious: Yes (Death)
  Sender: FDA-Public Use
  Company Number: None

PATIENT
  Age: 80 Year
  Sex: Male
  Weight: 81.7 kg

DRUGS (21)
  1. REMDESIVIR SOLUTION 100MG VIAL [Suspect]
     Active Substance: REMDESIVIR
     Indication: COVID-19 PNEUMONIA
     Dosage: ?          OTHER ROUTE:IV?
     Route: 042
     Dates: start: 20200921, end: 20200924
  2. ENOXAPARIN [Concomitant]
     Active Substance: ENOXAPARIN
  3. GABAPENTIN. [Concomitant]
     Active Substance: GABAPENTIN
  4. MELATONIN [Concomitant]
     Active Substance: MELATONIN
  5. ALBUTEROL. [Concomitant]
     Active Substance: ALBUTEROL
  6. MUPIROCIN. [Concomitant]
     Active Substance: MUPIROCIN
  7. CHLORHEXIDINE [Concomitant]
     Active Substance: CHLORHEXIDINE
  8. DEXAMETHASONE. [Concomitant]
     Active Substance: DEXAMETHASONE
  9. REMDESIVIR SOLUTION 100 MG VIAL [Suspect]
     Active Substance: REMDESIVIR
     Indication: COVID-19 PNEUMONIA
     Dosage: ?          OTHER ROUTE:IV?
     Route: 042
     Dates: start: 20200920, end: 20200920
  10. CARVEDILOL. [Concomitant]
     Active Substance: CARVEDILOL
  11. DEXTROMETHORPHAN-GUAIFENESIN [Concomitant]
     Active Substance: DEXTROMETHORPHAN\GUAIFENESIN
  12. PANTOPRAZOLE [Concomitant]
     Active Substance: PANTOPRAZOLE
  13. ASPIRIN. [Concomitant]
     Active Substance: ASPIRIN
  14. ONDANSETRON [Concomitant]
     Active Substance: ONDANSETRON
  15. BENZONATATE. [Concomitant]
     Active Substance: BENZONATATE
  16. INSULIN DETEMIR [Concomitant]
     Active Substance: INSULIN DETEMIR
  17. LEVOTHYROXINE. [Concomitant]
     Active Substance: LEVOTHYROXINE
  18. LISINOPRIL. [Concomitant]
     Active Substance: LISINOPRIL
  19. LOPERAMIDE [Concomitant]
     Active Substance: LOPERAMIDE
  20. ACETAMINOPHEN. [Concomitant]
     Active Substance: ACETAMINOPHEN
  21. INSULIN, REGULAR [Concomitant]
     Active Substance: INSULIN NOS

REACTIONS (3)
  - Respiratory failure [None]
  - Unresponsive to stimuli [None]
  - Hypoxia [None]

NARRATIVE: CASE EVENT DATE: 20200930
